FAERS Safety Report 6607174-2 (Version None)
Quarter: 2010Q1

REPORT INFORMATION
  Report Type: 
  Country: None (occurrence: None)
  Receive Date: 20100212
  Receipt Date: 20091110
  Transmission Date: 20100710
  Serious: No
  Sender: FDA-Public Use
  Company Number: 1000010024

PATIENT
  Age: 56 Year
  Sex: Female

DRUGS (9)
  1. SAVELLA [Suspect]
     Indication: FIBROMYALGIA
     Dosage: SEE IMAGE
     Route: 048
     Dates: start: 20091103, end: 20091103
  2. SAVELLA [Suspect]
     Indication: FIBROMYALGIA
     Dosage: SEE IMAGE
     Route: 048
     Dates: start: 20091104, end: 20091105
  3. SAVELLA [Suspect]
     Indication: FIBROMYALGIA
     Dosage: SEE IMAGE
     Route: 048
     Dates: start: 20091106, end: 20091109
  4. SAVELLA [Suspect]
     Indication: FIBROMYALGIA
     Dosage: SEE IMAGE
     Route: 048
     Dates: start: 20091110
  5. VICODIN [Concomitant]
  6. KLONOPIN [Concomitant]
  7. LUNESTA [Concomitant]
  8. TYLENOL W/ CODEINE NO. 3 [Concomitant]
  9. CORTISOL [Concomitant]

REACTIONS (1)
  - DRUG INEFFECTIVE [None]
